FAERS Safety Report 8105423-5 (Version None)
Quarter: 2012Q1

REPORT INFORMATION
  Report Type: 
  Country: None (occurrence: None)
  Receive Date: 20120201
  Receipt Date: 20120117
  Transmission Date: 20120608
  Serious: No
  Sender: FDA-Public Use
  Company Number: DE-ELI_LILLY_AND_COMPANY-DE201201004632

PATIENT
  Sex: Female

DRUGS (6)
  1. MARCUMAR [Concomitant]
  2. CALCIUM [Concomitant]
  3. FORTEO [Suspect]
     Indication: OSTEOPOROSIS
     Dosage: UNK, QD
     Route: 058
     Dates: start: 20100722, end: 20120113
  4. VITAMIN D [Concomitant]
  5. DIURETICS [Concomitant]
  6. CARDIAC THERAPY [Concomitant]

REACTIONS (2)
  - RENAL FUNCTION TEST ABNORMAL [None]
  - BLOOD CREATININE INCREASED [None]
